FAERS Safety Report 10060564 (Version 1)
Quarter: 2014Q2

REPORT INFORMATION
  Report Type: Spontaneous
  Country: US (occurrence: US)
  Receive Date: 20140404
  Receipt Date: 20140404
  Transmission Date: 20141212
  Serious: No
  Sender: FDA-Public Use
  Company Number: US-009507513-1403USA011512

PATIENT
  Sex: Male

DRUGS (2)
  1. COZAAR [Suspect]
     Route: 048
  2. IRBESARTAN [Concomitant]

REACTIONS (6)
  - Hypertension [Unknown]
  - Fatigue [Unknown]
  - Insomnia [Unknown]
  - Pollakiuria [Unknown]
  - Bowel movement irregularity [Unknown]
  - Listless [Unknown]
